FAERS Safety Report 25509048 (Version 1)
Quarter: 2025Q3

REPORT INFORMATION
  Report Type: Report from Study
  Country: BR (occurrence: BR)
  Receive Date: 20250703
  Receipt Date: 20250703
  Transmission Date: 20251020
  Serious: Yes (Other)
  Sender: AUROBINDO
  Company Number: BR-AUROBINDO-AUR-APL-2025-034074

PATIENT
  Age: 66 Year
  Sex: Female

DRUGS (4)
  1. OLANZAPINE [Suspect]
     Active Substance: OLANZAPINE
     Indication: Delusion
     Route: 065
  2. OLANZAPINE [Suspect]
     Active Substance: OLANZAPINE
     Route: 065
  3. PIMOZIDE [Suspect]
     Active Substance: PIMOZIDE
     Indication: Delusion
     Route: 065
  4. RISPERIDONE [Suspect]
     Active Substance: RISPERIDONE
     Indication: Delusion
     Route: 065

REACTIONS (2)
  - Sedation [Unknown]
  - Off label use [Unknown]
